FAERS Safety Report 5382859-7 (Version None)
Quarter: 2007Q3

REPORT INFORMATION
  Report Type: 
  Country: None (occurrence: None)
  Receive Date: 20070703
  Receipt Date: 20070703
  Transmission Date: 20080115
  Serious: Yes (Death)
  Sender: FDA-Public Use
  Company Number: None

PATIENT
  Sex: Female
  Weight: 63 kg

DRUGS (1)
  1. SEPTRA DS [Suspect]
     Indication: ACNE
     Dosage: ONE TABLET TWICE DAILY PO
     Route: 048
     Dates: start: 20070604, end: 20070612

REACTIONS (8)
  - BRAIN DEATH [None]
  - BRAIN OEDEMA [None]
  - CONFUSIONAL STATE [None]
  - CSF PROTEIN INCREASED [None]
  - DELIRIUM [None]
  - INTRACRANIAL PRESSURE INCREASED [None]
  - RASH [None]
  - TOXICOLOGIC TEST ABNORMAL [None]
